FAERS Safety Report 20345206 (Version 1)
Quarter: 2022Q1

REPORT INFORMATION
  Report Type: Spontaneous
  Country: US (occurrence: US)
  Receive Date: 20220118
  Receipt Date: 20220118
  Transmission Date: 20220423
  Serious: No
  Sender: FDA-Public Use
  Company Number: US-CELGENE-USA-20220103404

PATIENT
  Sex: Male

DRUGS (1)
  1. POMALYST [Suspect]
     Active Substance: POMALIDOMIDE
     Indication: Anticoagulant therapy
     Dosage: 2 MILLIGRAM
     Route: 048
     Dates: start: 20211123

REACTIONS (2)
  - Weight increased [Unknown]
  - Product dose omission issue [Unknown]
